FAERS Safety Report 5975561-1 (Version None)
Quarter: 2008Q4

REPORT INFORMATION
  Report Type: 
  Country: None (occurrence: None)
  Receive Date: 20081202
  Receipt Date: 20081125
  Transmission Date: 20090506
  Serious: Yes (Other)
  Sender: FDA-Public Use
  Company Number: JP-ABBOTT-08P-087-0487836-00

PATIENT
  Age: 59 Year
  Sex: Male
  Weight: 69 kg

DRUGS (8)
  1. SEVOFLURANE [Suspect]
     Indication: MAINTENANCE OF ANAESTHESIA
     Route: 055
  2. REMIFENTANIL HYCHLORIDE [Suspect]
     Indication: ANAESTHESIA
     Route: 042
  3. PROPOFOL [Concomitant]
     Indication: INDUCTION OF ANAESTHESIA
     Route: 042
  4. ROCURONIUM BROMIDE [Concomitant]
     Indication: INDUCTION OF ANAESTHESIA
     Route: 042
  5. HYDROCORTISONE SODIUM PHOSPHATE [Concomitant]
     Indication: DRUG USE FOR UNKNOWN INDICATION
  6. BARIUM SULFATE [Concomitant]
     Indication: DRUG USE FOR UNKNOWN INDICATION
  7. BARIUM SULFATE [Concomitant]
     Dosage: UNKNOWN
  8. VASOPRESSOR [Concomitant]
     Indication: HYPOTENSION
     Dosage: UNKNOWN

REACTIONS (1)
  - ARTERIOSPASM CORONARY [None]
